FAERS Safety Report 5863521-0 (Version None)
Quarter: 2008Q3

REPORT INFORMATION
  Report Type: 
  Country: None (occurrence: None)
  Receive Date: 20080828
  Receipt Date: 20080825
  Transmission Date: 20090109
  Serious: Yes (Hospitalization)
  Sender: FDA-Public Use
  Company Number: US-BOEHRINGER INGELHEIM GMBH, GERMANY-2008-BP-11723RO

PATIENT
  Sex: Female
  Weight: 107 kg

DRUGS (41)
  1. SODIUM POLYSTYRENE SULFONATE [Suspect]
     Indication: BLOOD POTASSIUM INCREASED
     Route: 048
     Dates: start: 20080407, end: 20080407
  2. SODIUM POLYSTYRENE SULFONATE [Suspect]
     Route: 048
     Dates: start: 20080414, end: 20080414
  3. SODIUM POLYSTYRENE SULFONATE [Suspect]
     Route: 048
     Dates: start: 20080519, end: 20080519
  4. SODIUM POLYSTYRENE SULFONATE [Suspect]
     Dates: start: 20080616, end: 20080616
  5. SODIUM POLYSTYRENE SULFONATE [Suspect]
     Dates: start: 20080623, end: 20080623
  6. SODIUM POLYSTYRENE SULFONATE [Suspect]
     Dates: start: 20080731, end: 20080731
  7. IMMUNOSUPPRESSANTS [Concomitant]
     Indication: RENAL TRANSPLANT
  8. CELLCEPT [Concomitant]
     Indication: PROPHYLAXIS AGAINST TRANSPLANT REJECTION
     Dates: start: 20080426
  9. PROGRAFT [Concomitant]
     Indication: PROPHYLAXIS AGAINST TRANSPLANT REJECTION
  10. VALCYTE [Concomitant]
     Indication: ANTIVIRAL PROPHYLAXIS
     Dates: start: 20080426, end: 20080805
  11. BACTRIM DS [Concomitant]
     Indication: ANTIFUNGAL PROPHYLAXIS
     Dates: start: 20080517
  12. MAGNESIUM OXIDE [Concomitant]
     Dates: start: 20080517
  13. MULTI-VITAMIN [Concomitant]
     Dates: start: 20080517
  14. ASPIRIN [Concomitant]
     Dates: start: 20080517
  15. PROTONIX [Concomitant]
     Dates: start: 20080517
  16. SYNTHROID [Concomitant]
     Dates: start: 20080429
  17. REGLAN [Concomitant]
     Dates: start: 20080517
  18. DEMADEX [Concomitant]
     Dates: start: 20080613
  19. MIDODRINE [Concomitant]
     Dates: start: 20080427
  20. CALCIUM CARBONATE [Concomitant]
     Dates: start: 20080514
  21. METHADONE HCL [Concomitant]
     Dates: start: 20080517
  22. COUMADIN [Concomitant]
     Dates: start: 20080521
  23. EPOGEN [Concomitant]
     Dates: start: 20080611
  24. CYMBALTA [Concomitant]
     Dates: start: 20080426
  25. FLAGYL [Concomitant]
     Dates: start: 20080613, end: 20080623
  26. DAPTOMYCIN [Concomitant]
     Route: 042
     Dates: start: 20080531, end: 20080618
  27. MICAFUNGIN [Concomitant]
     Route: 042
     Dates: start: 20080603, end: 20080618
  28. FOLIC ACID [Concomitant]
     Dates: start: 20080702
  29. IMIPENEM [Concomitant]
     Dates: start: 20080601, end: 20080605
  30. IMIPENEM [Concomitant]
     Dates: start: 20080605, end: 20080609
  31. IMIPENEM [Concomitant]
     Dates: start: 20080802, end: 20080805
  32. HUMALOG [Concomitant]
  33. NPH [Concomitant]
  34. LINEZOLID [Concomitant]
     Dates: start: 20080528, end: 20080604
  35. MEGACE [Concomitant]
     Dates: start: 20080517, end: 20080613
  36. NYSTATIN [Concomitant]
     Dates: start: 20080517, end: 20080613
  37. CLINDAMYACIN [Concomitant]
     Dates: start: 20080425, end: 20080426
  38. CLINDAMYACIN [Concomitant]
     Dates: start: 20080526, end: 20080528
  39. ATIVAN [Concomitant]
     Dates: start: 20080509
  40. ULTRAM [Concomitant]
     Dates: start: 20080426
  41. AMBIEN [Concomitant]
     Dates: start: 20080623

REACTIONS (8)
  - BLOOD POTASSIUM INCREASED [None]
  - CANDIDA SEPSIS [None]
  - COMA [None]
  - ENTEROCOCCAL INFECTION [None]
  - INFECTION [None]
  - NEUROLOGICAL SYMPTOM [None]
  - PNEUMONIA KLEBSIELLA [None]
  - SEPSIS [None]
